FAERS Safety Report 18915190 (Version 2)
Quarter: 2021Q1

REPORT INFORMATION
  Report Type: Report from Study
  Country: US (occurrence: US)
  Receive Date: 20210219
  Receipt Date: 20210312
  Transmission Date: 20210420
  Serious: Yes (Death)
  Sender: FDA-Public Use
  Company Number: US-ASTRAZENECA-2021A064535

PATIENT
  Age: 25603 Day
  Sex: Male

DRUGS (1)
  1. TAGRISSO [Suspect]
     Active Substance: OSIMERTINIB
     Route: 048
     Dates: start: 20201229

REACTIONS (2)
  - Product dose omission issue [Unknown]
  - Ill-defined disorder [Fatal]

NARRATIVE: CASE EVENT DATE: 20210203
